FAERS Safety Report 22377326 (Version 4)
Quarter: 2023Q4

REPORT INFORMATION
  Report Type: Spontaneous
  Country: CA (occurrence: CA)
  Receive Date: 20230529
  Receipt Date: 20231108
  Transmission Date: 20240110
  Serious: Yes (Hospitalization, Other)
  Sender: FDA-Public Use
  Company Number: CA-CELLTRION INC.-2023CA008280

PATIENT

DRUGS (6)
  1. INFLECTRA [Suspect]
     Active Substance: INFLIXIMAB-DYYB
     Indication: Crohn^s disease
     Dosage: 400 MG ON WEEK 0 (W0, W2, W6 AND THEN EVERY 8 WEEKS)
     Route: 042
     Dates: start: 20230413
  2. INFLECTRA [Suspect]
     Active Substance: INFLIXIMAB-DYYB
     Dosage: 400 MG, WEEK 2-INDUCTION
     Route: 042
     Dates: start: 20230428
  3. METHOTREXATE [Concomitant]
     Active Substance: METHOTREXATE
     Indication: Crohn^s disease
     Dosage: 1 DF
  4. METHOTREXATE [Concomitant]
     Active Substance: METHOTREXATE
     Dosage: UNK, WEEKLY
  5. PREDNISONE [Concomitant]
     Active Substance: PREDNISONE
     Dosage: 1 DF
  6. MESALAMINE [Concomitant]
     Active Substance: MESALAMINE
     Dosage: 1 DF

REACTIONS (7)
  - Immune system disorder [Recovering/Resolving]
  - Pneumonia [Unknown]
  - Herpes zoster [Unknown]
  - Condition aggravated [Not Recovered/Not Resolved]
  - Off label use [Unknown]
  - Off label use [Unknown]
  - Intentional product use issue [Unknown]

NARRATIVE: CASE EVENT DATE: 20230101
